FAERS Safety Report 4386153-2 (Version None)
Quarter: 2004Q2

REPORT INFORMATION
  Report Type: 
  Country: None (occurrence: None)
  Receive Date: 20040628
  Receipt Date: 20040628
  Transmission Date: 20050107
  Serious: No
  Sender: FDA-Public Use
  Company Number: None

PATIENT
  Age: 49 Year
  Sex: Male
  Weight: 80.2867 kg

DRUGS (4)
  1. ZOCOR [Suspect]
     Indication: HYPERCHOLESTEROLAEMIA
     Dosage: 40 MG DAILY ORAL
     Route: 048
     Dates: start: 19980401, end: 20040301
  2. TOPROL-XL [Concomitant]
  3. DYAZIDE [Concomitant]
  4. CLONAZEPAM [Concomitant]

REACTIONS (2)
  - BACK PAIN [None]
  - MYALGIA [None]
